FAERS Safety Report 5294709-8 (Version None)
Quarter: 2007Q2

REPORT INFORMATION
  Report Type: 
  Country: None (occurrence: None)
  Receive Date: 20070409
  Receipt Date: 20070409
  Transmission Date: 20071010
  Serious: Yes (Hospitalization, Disabling)
  Sender: FDA-Public Use
  Company Number: None

PATIENT
  Age: 40 Year
  Sex: Female
  Weight: 91 kg

DRUGS (10)
  1. ARIPIPRAZOLE [Suspect]
     Indication: BIPOLAR DISORDER
     Dates: start: 20070208, end: 20070208
  2. PROVIGIL [Concomitant]
  3. BUSPAR [Concomitant]
  4. NEXIUM [Concomitant]
  5. CELEXA [Concomitant]
  6. KLOR-CON [Concomitant]
  7. CHLORTHALIDONE [Concomitant]
  8. ATENOLOL [Concomitant]
  9. ALLEGRA [Concomitant]
  10. AMBIEN [Concomitant]

REACTIONS (5)
  - DYSKINESIA [None]
  - EYE ROLLING [None]
  - LOSS OF CONSCIOUSNESS [None]
  - MUSCLE TWITCHING [None]
  - TREMOR [None]
